FAERS Safety Report 23320114 (Version 1)
Quarter: 2023Q4

REPORT INFORMATION
  Report Type: Spontaneous
  Country: ES (occurrence: ES)
  Receive Date: 20231220
  Receipt Date: 20231220
  Transmission Date: 20240109
  Serious: Yes (Other)
  Sender: FDA-Public Use
  Company Number: ES-KYOWAKIRIN-2023KK020283

PATIENT

DRUGS (11)
  1. POTELIGEO [Suspect]
     Active Substance: MOGAMULIZUMAB-KPKC
     Indication: Cutaneous T-cell lymphoma stage I
     Dosage: UNK (1ST CYCLE)
     Route: 065
     Dates: start: 20220218
  2. POTELIGEO [Suspect]
     Active Substance: MOGAMULIZUMAB-KPKC
     Dosage: UNK (2ND CYCLE)
     Route: 065
  3. POTELIGEO [Suspect]
     Active Substance: MOGAMULIZUMAB-KPKC
     Dosage: UNK (3RD CYCLE)
     Route: 065
  4. POTELIGEO [Suspect]
     Active Substance: MOGAMULIZUMAB-KPKC
     Dosage: UNK (4TH CYCLE)
     Route: 065
  5. POTELIGEO [Suspect]
     Active Substance: MOGAMULIZUMAB-KPKC
     Dosage: UNK (5TH CYCLE)
     Route: 065
  6. POTELIGEO [Suspect]
     Active Substance: MOGAMULIZUMAB-KPKC
     Dosage: UNK (8TH CYCLE)
     Route: 065
  7. POTELIGEO [Suspect]
     Active Substance: MOGAMULIZUMAB-KPKC
     Dosage: UNK (12TH CYCLE)
     Route: 065
  8. POTELIGEO [Suspect]
     Active Substance: MOGAMULIZUMAB-KPKC
     Dosage: UNK (13TH CYCLE)
     Route: 065
  9. POTELIGEO [Suspect]
     Active Substance: MOGAMULIZUMAB-KPKC
     Dosage: UNK (17TH CYCLE)
     Route: 065
  10. POTELIGEO [Suspect]
     Active Substance: MOGAMULIZUMAB-KPKC
     Dosage: UNK (20TH CYCLE)
     Route: 065
  11. POTELIGEO [Suspect]
     Active Substance: MOGAMULIZUMAB-KPKC
     Dosage: UNK (22ND CYCLE)
     Route: 065

REACTIONS (3)
  - Colitis [Unknown]
  - Asthenia [Unknown]
  - Vitiligo [Unknown]
